FAERS Safety Report 25135506 (Version 2)
Quarter: 2025Q2

REPORT INFORMATION
  Report Type: Report from Study
  Country: US (occurrence: US)
  Receive Date: 20250328
  Receipt Date: 20250425
  Transmission Date: 20250716
  Serious: Yes (Hospitalization, Other)
  Sender: GILEAD
  Company Number: US-GILEAD-2025-0708651

PATIENT
  Sex: Female

DRUGS (26)
  1. AZTREONAM LYSINE [Suspect]
     Active Substance: AZTREONAM LYSINE
     Indication: Pseudomonas infection
     Dosage: TAKE 1 ML (75 MG TOTAL) BY NEBULIZATION 3 (THREE) TIMES DAILY. ALTERNATE 28 DAYS ON, 28 DAYS OFF.
     Route: 055
  2. IBUPROFEN [Concomitant]
     Active Substance: IBUPROFEN
  3. AZITHROMYCIN [Concomitant]
     Active Substance: AZITHROMYCIN
  4. CREON [Concomitant]
     Active Substance: PANCRELIPASE AMYLASE\PANCRELIPASE LIPASE\PANCRELIPASE PROTEASE
  5. MOMETASONE FUROATE [Concomitant]
     Active Substance: MOMETASONE FUROATE
  6. LANSOPRAZOLE [Concomitant]
     Active Substance: LANSOPRAZOLE
  7. MEPHYTON [Concomitant]
     Active Substance: PHYTONADIONE
  8. SPRINTEC [Concomitant]
     Active Substance: ETHINYL ESTRADIOL\NORGESTIMATE
  9. ALBUTEROL [Concomitant]
     Active Substance: ALBUTEROL
  10. XOPENEX [Concomitant]
     Active Substance: LEVALBUTEROL HYDROCHLORIDE
  11. LISINOPRIL [Concomitant]
     Active Substance: LISINOPRIL
  12. CETIRIZINE [Concomitant]
     Active Substance: CETIRIZINE HYDROCHLORIDE
  13. METRIX [Concomitant]
  14. MUPIROCIN [Concomitant]
     Active Substance: MUPIROCIN
  15. SODIUM CHLORIDE [Concomitant]
     Active Substance: SODIUM CHLORIDE
  16. RIZATRIPTAN BENZOATE [Concomitant]
     Active Substance: RIZATRIPTAN BENZOATE
  17. VITAMINS\ZINC [Concomitant]
     Active Substance: VITAMINS\ZINC
  18. ADVAIR HFA [Concomitant]
     Active Substance: FLUTICASONE PROPIONATE\SALMETEROL XINAFOATE
  19. PULMOZYME [Concomitant]
     Active Substance: DORNASE ALFA
  20. LANTUS [Concomitant]
     Active Substance: INSULIN GLARGINE
  21. DICLOFENAC SODIUM [Concomitant]
     Active Substance: DICLOFENAC SODIUM
  22. SODIUM FLUORIDE 5000 PPM SENSITIVE [Concomitant]
     Active Substance: POTASSIUM NITRATE\SODIUM FLUORIDE
  23. FLONASE ALLERGY RELIEF [Concomitant]
     Active Substance: FLUTICASONE PROPIONATE
  24. PROBIOTIN [Concomitant]
  25. ADVAIR HFA [Concomitant]
     Active Substance: FLUTICASONE PROPIONATE\SALMETEROL XINAFOATE
  26. SODIUM FLUORIDE [Concomitant]
     Active Substance: SODIUM FLUORIDE

REACTIONS (2)
  - Metapneumovirus pneumonia [Unknown]
  - Product use in unapproved indication [Not Recovered/Not Resolved]
